FAERS Safety Report 9146428 (Version 1)
Quarter: 2013Q1

REPORT INFORMATION
  Report Type: Spontaneous
  Country: FR (occurrence: FR)
  Receive Date: 20130307
  Receipt Date: 20130307
  Transmission Date: 20140127
  Serious: Yes (Hospitalization)
  Sender: FDA-Public Use
  Company Number: FR-ASTRAZENECA-2013SE14162

PATIENT
  Age: 24 Year
  Sex: Male

DRUGS (3)
  1. EMLAPATCH [Suspect]
     Indication: OSTEOSYNTHESIS
     Route: 061
     Dates: start: 20130118, end: 20130118
  2. AZANTAC [Suspect]
     Indication: OSTEOSYNTHESIS
     Route: 048
     Dates: start: 20130118, end: 20130118
  3. GABAPENTIN [Suspect]
     Indication: OSTEOSYNTHESIS
     Route: 048
     Dates: start: 20130118, end: 20130118

REACTIONS (7)
  - Face oedema [Recovered/Resolved]
  - Erythema [Recovered/Resolved]
  - Pruritus [Recovered/Resolved]
  - Dyspnoea [Recovered/Resolved]
  - Chest discomfort [Recovered/Resolved]
  - Vomiting [Recovered/Resolved]
  - Urticaria [Recovered/Resolved]
